FAERS Safety Report 25347553 (Version 1)
Quarter: 2025Q2

REPORT INFORMATION
  Report Type: Spontaneous
  Country: JP (occurrence: JP)
  Receive Date: 20250522
  Receipt Date: 20250522
  Transmission Date: 20250716
  Serious: Yes (Death, Other)
  Sender: ELI LILLY AND COMPANY
  Company Number: JP-ELI_LILLY_AND_COMPANY-JP202505017510

PATIENT
  Age: 43 Year
  Sex: Male

DRUGS (2)
  1. GEMCITABINE HYDROCHLORIDE [Suspect]
     Active Substance: GEMCITABINE HYDROCHLORIDE
     Indication: Bladder transitional cell carcinoma
     Route: 041
  2. CISPLATIN [Concomitant]
     Active Substance: CISPLATIN
     Indication: Bladder transitional cell carcinoma

REACTIONS (9)
  - Thrombophlebitis migrans [Fatal]
  - Cerebral infarction [Fatal]
  - Malignant neoplasm progression [Fatal]
  - Renal infarct [Unknown]
  - Renal impairment [Unknown]
  - Endocarditis [Unknown]
  - Myocardial infarction [Unknown]
  - Myelosuppression [Unknown]
  - Pulmonary oedema [Unknown]
